FAERS Safety Report 12916523 (Version 2)
Quarter: 2016Q4

REPORT INFORMATION
  Report Type: Spontaneous
  Country: US (occurrence: US)
  Receive Date: 20161107
  Receipt Date: 20161116
  Transmission Date: 20170207
  Serious: No
  Sender: FDA-Public Use
  Company Number: US-009507513-1610USA016766

PATIENT
  Sex: Female

DRUGS (1)
  1. NEXPLANON [Suspect]
     Active Substance: ETONOGESTREL
     Dosage: ONE ROD PER 3 YEARS

REACTIONS (7)
  - Device deployment issue [Not Recovered/Not Resolved]
  - Complication associated with device [Recovered/Resolved]
  - Product quality issue [Unknown]
  - Implant site pain [Unknown]
  - Complication of device insertion [Not Recovered/Not Resolved]
  - Complication of device removal [Not Recovered/Not Resolved]
  - Medical device discomfort [Unknown]
